FAERS Safety Report 24212697 (Version 1)
Quarter: 2024Q3

REPORT INFORMATION
  Report Type: Report from Study
  Country: US (occurrence: None)
  Receive Date: 20240815
  Receipt Date: 20240815
  Transmission Date: 20241016
  Serious: Yes (Hospitalization, Other)
  Sender: ASTRAZENECA
  Company Number: 2024A180762

PATIENT
  Age: 21109 Day
  Sex: Female

DRUGS (1)
  1. TAGRISSO [Suspect]
     Active Substance: OSIMERTINIB
     Indication: Lung neoplasm malignant
     Route: 048
     Dates: start: 20211119

REACTIONS (3)
  - Chest pain [Unknown]
  - Central nervous system lesion [Unknown]
  - Pain [Unknown]

NARRATIVE: CASE EVENT DATE: 20240622
